FAERS Safety Report 20144282 (Version 1)
Quarter: 2021Q4

REPORT INFORMATION
  Report Type: Spontaneous
  Country: US (occurrence: US)
  Receive Date: 20211203
  Receipt Date: 20211203
  Transmission Date: 20220303
  Serious: No
  Sender: FDA-Public Use
  Company Number: US-GLAXOSMITHKLINE-US2021AMR248115

PATIENT
  Sex: Female

DRUGS (1)
  1. ANORO ELLIPTA [Suspect]
     Active Substance: UMECLIDINIUM BROMIDE\VILANTEROL TRIFENATATE
     Indication: Product used for unknown indication
     Dosage: UNK
     Dates: start: 202102

REACTIONS (9)
  - Rash pruritic [Unknown]
  - Rash [Unknown]
  - Haemoglobin decreased [Unknown]
  - Anaemia [Unknown]
  - Renal disorder [Unknown]
  - Stress [Unknown]
  - Depression [Unknown]
  - Fatigue [Unknown]
  - Insomnia [Unknown]
